FAERS Safety Report 6410334-7 (Version None)
Quarter: 2009Q4

REPORT INFORMATION
  Report Type: 
  Country: None (occurrence: None)
  Receive Date: 20091022
  Receipt Date: 20091015
  Transmission Date: 20100525
  Serious: Yes (Other)
  Sender: FDA-Public Use
  Company Number: US-ROCHE-662951

PATIENT
  Sex: Male
  Weight: 95.7 kg

DRUGS (1)
  1. ACCUTANE [Suspect]
     Dosage: PERIODICALLY DISCONTINUED FOR 1-2 MONTHS
     Route: 048

REACTIONS (7)
  - DEPRESSION [None]
  - DIZZINESS [None]
  - EPISTAXIS [None]
  - FATIGUE [None]
  - HALLUCINATION [None]
  - HEADACHE [None]
  - SUICIDAL IDEATION [None]
